FAERS Safety Report 5704612-4 (Version None)
Quarter: 2008Q2

REPORT INFORMATION
  Report Type: 
  Country: None (occurrence: None)
  Receive Date: 20080409
  Receipt Date: 20080403
  Transmission Date: 20081010
  Serious: Yes (Death, Life-Threatening, Hospitalization)
  Sender: FDA-Public Use
  Company Number: TPA2008A00299

PATIENT
  Age: 67 Year
  Sex: Male
  Weight: 160.1197 kg

DRUGS (6)
  1. ACTOS [Suspect]
     Indication: TYPE 2 DIABETES MELLITUS
     Dosage: 45 MG, 1 IN 1 D, PER ORAL
     Route: 048
     Dates: start: 20030301
  2. ZOCOR [Concomitant]
  3. SYNTHROID [Concomitant]
  4. ENALAPRIL MALEATE [Concomitant]
  5. LANTUS [Concomitant]
  6. INSULIN NPH 70/30 (INSULIN INJECTION ISOPHANE) [Suspect]
     Indication: TYPE 2 DIABETES MELLITUS
     Dosage: 25 U AM 15 UPM
     Dates: start: 20070301

REACTIONS (3)
  - DIALYSIS [None]
  - RENAL FAILURE [None]
  - WEIGHT INCREASED [None]
